FAERS Safety Report 6848564-2 (Version None)
Quarter: 2010Q3

REPORT INFORMATION
  Report Type: 
  Country: None (occurrence: None)
  Receive Date: 20100716
  Receipt Date: 20100708
  Transmission Date: 20110219
  Serious: Yes (Other)
  Sender: FDA-Public Use
  Company Number: US-ASTRAZENECA-2010SE32012

PATIENT
  Age: 41 Year
  Sex: Female
  Weight: 55.8 kg

DRUGS (9)
  1. SEROQUEL [Suspect]
     Indication: PSYCHOTIC DISORDER
     Route: 048
  2. GEODON [Suspect]
     Indication: ANXIETY
     Dosage: 20 MG IN MORNING, 20 MG IN AFTERNOON AND 40 MG AT BEDTIME
     Route: 048
     Dates: start: 20020801
  3. GEODON [Suspect]
     Indication: THINKING ABNORMAL
     Dosage: 20 MG IN MORNING, 20 MG IN AFTERNOON AND 40 MG AT BEDTIME
     Route: 048
     Dates: start: 20020801
  4. GEODON [Suspect]
     Indication: PSYCHOTIC DISORDER
     Dosage: 20 MG IN MORNING, 20 MG IN AFTERNOON AND 40 MG AT BEDTIME
     Route: 048
     Dates: start: 20020801
  5. PROMETHAZINE HCL [Suspect]
     Indication: NAUSEA
     Route: 048
     Dates: start: 20020719
  6. PROMETHAZINE HCL [Suspect]
     Indication: VOMITING
     Route: 048
     Dates: start: 20020719
  7. ZYPREXA [Suspect]
     Indication: PSYCHOTIC DISORDER
     Route: 048
  8. TRAZODONE HYDROCHLORIDE [Concomitant]
     Indication: POOR QUALITY SLEEP
  9. LORAZEPAM [Concomitant]

REACTIONS (15)
  - COMMUNICATION DISORDER [None]
  - DECREASED APPETITE [None]
  - DEMENTIA [None]
  - DEREALISATION [None]
  - DIZZINESS [None]
  - FATIGUE [None]
  - FEELING ABNORMAL [None]
  - FEELING HOT [None]
  - FOOD POISONING [None]
  - HALLUCINATION, VISUAL [None]
  - NAUSEA [None]
  - POOR QUALITY SLEEP [None]
  - SUICIDE ATTEMPT [None]
  - VOMITING [None]
  - WHITE BLOOD CELL COUNT INCREASED [None]
